FAERS Safety Report 14763579 (Version 2)
Quarter: 2018Q2

REPORT INFORMATION
  Report Type: Spontaneous
  Country: JP (occurrence: JP)
  Receive Date: 20180416
  Receipt Date: 20180420
  Transmission Date: 20180711
  Serious: Yes (Disabling, Other)
  Sender: FDA-Public Use
  Company Number: JP-ROCHE-2095990

PATIENT
  Age: 77 Year
  Sex: Female
  Weight: 45 kg

DRUGS (7)
  1. AVASTIN [Suspect]
     Active Substance: BEVACIZUMAB
     Route: 041
     Dates: start: 20170725, end: 20171124
  2. AVASTIN [Suspect]
     Active Substance: BEVACIZUMAB
     Indication: BREAST CANCER
     Dosage: DOSAGE IS UNCERTAIN.
     Route: 041
     Dates: start: 20170613, end: 20170711
  3. PACLITAXEL. [Suspect]
     Active Substance: PACLITAXEL
     Indication: BREAST CANCER
     Dosage: 3 DAYS ADMINISTRATION FOLLOWED BY 1 DAYS REST
     Route: 041
     Dates: start: 20170613, end: 20170914
  4. FAMOTIDINE. [Concomitant]
     Active Substance: FAMOTIDINE
     Dosage: DOSAGE IS UNCERTAIN.
     Route: 065
     Dates: start: 20170613, end: 20171222
  5. POLARAMINE [Concomitant]
     Active Substance: DEXCHLORPHENIRAMINE MALEATE
     Dosage: DOSAGE IS UNCERTAIN.
     Route: 065
     Dates: start: 20170613, end: 20171222
  6. PACLITAXEL. [Suspect]
     Active Substance: PACLITAXEL
     Dosage: 3 DAYS ADMINISTRATION FOLLOWED BY 1 DAYS REST
     Route: 041
     Dates: start: 20170915, end: 20171222
  7. DEXART [Concomitant]
     Active Substance: DEXAMETHASONE SODIUM PHOSPHATE
     Dosage: DOSAGE IS UNCERTAIN.
     Route: 065
     Dates: start: 20170613, end: 20171222

REACTIONS (3)
  - Hypertension [Unknown]
  - Bone marrow failure [Recovered/Resolved]
  - Cerebral haemorrhage [Recovered/Resolved with Sequelae]

NARRATIVE: CASE EVENT DATE: 20170725
